FAERS Safety Report 8459647-8 (Version None)
Quarter: 2012Q2

REPORT INFORMATION
  Report Type: 
  Country: None (occurrence: None)
  Receive Date: 20120622
  Receipt Date: 20120619
  Transmission Date: 20120825
  Serious: Yes (Life-Threatening)
  Sender: FDA-Public Use
  Company Number: UG-VIIV HEALTHCARE LIMITED-B0810002A

PATIENT
  Sex: Female
  Weight: 2.5 kg

DRUGS (3)
  1. LOPINAVIR AND RITONAVIR [Suspect]
     Indication: HIV INFECTION
     Route: 048
     Dates: start: 20120221
  2. NEVIRAPINE [Suspect]
     Indication: HIV INFECTION
     Dosage: 10MG PER DAY
     Route: 048
     Dates: start: 20120602
  3. COMBIVIR [Suspect]
     Indication: HIV INFECTION
     Dosage: 450MG TWICE PER DAY
     Route: 048
     Dates: start: 20120221

REACTIONS (3)
  - MATERNAL DRUGS AFFECTING FOETUS [None]
  - CONGENITAL ANAEMIA [None]
  - ANAEMIA MACROCYTIC [None]
